FAERS Safety Report 6812364-X (Version None)
Quarter: 2010Q2

REPORT INFORMATION
  Report Type: 
  Country: None (occurrence: None)
  Receive Date: 20100628
  Receipt Date: 20100616
  Transmission Date: 20101027
  Serious: Yes (Death)
  Sender: FDA-Public Use
  Company Number: 2010AL001299

PATIENT
  Age: 47 Year
  Sex: Male

DRUGS (3)
  1. CITALOPRAM HYDROBROMIDE TABLETS, 40 MG (PUREPAC) (CITALOPRAM HYDROBROM [Suspect]
  2. CLOZARIL [Concomitant]
  3. PREV MEDS [Concomitant]

REACTIONS (4)
  - ARTERIOSCLEROSIS CORONARY ARTERY [None]
  - CARDIAC ARREST [None]
  - FALL [None]
  - MYOCARDIAL ISCHAEMIA [None]
